FAERS Safety Report 10250490 (Version 1)
Quarter: 2014Q2

REPORT INFORMATION
  Report Type: Spontaneous
  Country: JP (occurrence: None)
  Receive Date: 20140618
  Receipt Date: 20140618
  Transmission Date: 20141212
  Serious: No
  Sender: FDA-Public Use
  Company Number: B1001112A

PATIENT
  Age: 75 Year
  Sex: Female

DRUGS (3)
  1. PAROXETINE HYDROCHLORIDE TABLET (PAROXETINE HYDROCHLORIDE) [Suspect]
     Indication: PRODUCT USED FOR UNKNOWN INDICATION
     Route: 048
  2. ALPRAZOLAM [Concomitant]
  3. BROMAZEPAM [Concomitant]

REACTIONS (2)
  - Dementia [None]
  - Hallucination, visual [None]
